FAERS Safety Report 21630444 (Version 1)
Quarter: 2022Q4

REPORT INFORMATION
  Report Type: Report from Study
  Country: GB (occurrence: GB)
  Receive Date: 20221122
  Receipt Date: 20221122
  Transmission Date: 20230113
  Serious: Yes (Hospitalization, Other)
  Sender: FDA-Public Use
  Company Number: GB-TEVA-2022-GB-2066033

PATIENT
  Age: 65 Year
  Sex: Female
  Weight: 80 kg

DRUGS (58)
  1. BENDAMUSTINE [Suspect]
     Active Substance: BENDAMUSTINE
     Indication: Follicular lymphoma
     Dosage: CYCLICAL, DOSAGE FORM- POWDER FOR SOLUTION FOR INJECTION
     Route: 042
  2. BENDAMUSTINE [Suspect]
     Active Substance: BENDAMUSTINE
     Dosage: 180 MG, DOSAGE FORM- POWDER FOR SOLUTION FOR INJECTION
     Route: 042
     Dates: start: 20210706
  3. BENDAMUSTINE [Suspect]
     Active Substance: BENDAMUSTINE
     Dosage: 180 MG, (ONCE DAILY), CYCLICAL, DOSAGE FORM- POWDER FOR SOLUTION FOR INJECTION
     Route: 042
     Dates: start: 20210308
  4. ATEZOLIZUMAB [Suspect]
     Active Substance: ATEZOLIZUMAB
     Indication: Transitional cell carcinoma
     Dosage: 1200 MG, 3 TIMES PER WEEK, ADDITIONAL INFO: 2ND INDICATION:UROTHELIAL CARCINOMA
     Route: 042
     Dates: start: 20200210
  5. ATEZOLIZUMAB [Suspect]
     Active Substance: ATEZOLIZUMAB
     Indication: Non-small cell lung cancer
     Dosage: 3600 MG, ONCE IN A WEEK, ADDITIONAL INFO: 2ND INDICATION:UROTHELIAL CARCINOMA
     Route: 042
     Dates: start: 20200210
  6. ATEZOLIZUMAB [Suspect]
     Active Substance: ATEZOLIZUMAB
     Dosage: ADDITIONAL INFO: 2ND INDICATION:UROTHELIAL CARCINOMA
     Route: 065
     Dates: start: 20200518
  7. ATEZOLIZUMAB [Suspect]
     Active Substance: ATEZOLIZUMAB
     Dosage: 1200 MG, 2 TIMES PER WEEK, ADDITIONAL INFO: 2ND INDICATION:UROTHELIAL CARCINOMA
     Route: 042
     Dates: start: 20200210
  8. ATEZOLIZUMAB [Suspect]
     Active Substance: ATEZOLIZUMAB
     Dosage: ADDITIONAL INFO: 2ND INDICATION:UROTHELIAL CARCINOMA
     Route: 065
     Dates: start: 20200606
  9. ATEZOLIZUMAB [Suspect]
     Active Substance: ATEZOLIZUMAB
     Dosage: 1200 MG, ONCE IN A WEEK, ADDITIONAL INFO: 2ND INDICATION:UROTHELIAL CARCINOMA
     Route: 042
     Dates: start: 20200210
  10. ATEZOLIZUMAB [Suspect]
     Active Substance: ATEZOLIZUMAB
     Dosage: ADDITIONAL INFO: 2ND INDICATION:UROTHELIAL CARCINOMA
     Route: 065
     Dates: start: 20200625
  11. BEVACIZUMAB [Suspect]
     Active Substance: BEVACIZUMAB
     Indication: Transitional cell carcinoma
     Dosage: 1100 MG, ADDITIONAL INFO: 2ND INDICATION:UROTHELIAL CARCINOMA
     Route: 042
     Dates: start: 20200210
  12. BEVACIZUMAB [Suspect]
     Active Substance: BEVACIZUMAB
     Indication: Non-small cell lung cancer
     Dosage: 1200 MG, EVERY 2 WEEKS, ADDITIONAL INFO: 2ND INDICATION:UROTHELIAL CARCINOMA
     Route: 042
     Dates: start: 20200210
  13. BEVACIZUMAB [Suspect]
     Active Substance: BEVACIZUMAB
     Dosage: 1200 MG, ONCE IN A WEEK, ADDITIONAL INFO: 2ND INDICATION:UROTHELIAL CARCINOMA
     Route: 042
     Dates: start: 20200210
  14. BEVACIZUMAB [Suspect]
     Active Substance: BEVACIZUMAB
     Dosage: 2400 MG, ONCE IN A WEEK, ADDITIONAL INFO: 2ND INDICATION:UROTHELIAL CARCINOMA
     Route: 042
     Dates: start: 20200210
  15. BEVACIZUMAB [Suspect]
     Active Substance: BEVACIZUMAB
     Dosage: 1200 MG, EVERY 3 WEEKS, ADDITIONAL INFO: 2ND INDICATION:UROTHELIAL CARCINOMA
     Route: 042
     Dates: start: 20200210
  16. CARBOPLATIN [Suspect]
     Active Substance: CARBOPLATIN
     Indication: Transitional cell carcinoma
     Dosage: 630 MG
     Route: 042
     Dates: start: 20200210
  17. CARBOPLATIN [Suspect]
     Active Substance: CARBOPLATIN
     Dosage: UNK
     Route: 042
  18. DIHYDROCODEINE BITARTRATE [Suspect]
     Active Substance: DIHYDROCODEINE BITARTRATE
     Indication: Visual impairment
     Dosage: 1 DOSAGE FORMS DAILY
     Route: 065
  19. PACLITAXEL [Suspect]
     Active Substance: PACLITAXEL
     Indication: Transitional cell carcinoma
     Route: 065
  20. PACLITAXEL [Suspect]
     Active Substance: PACLITAXEL
     Dosage: 378 MG
     Route: 065
     Dates: start: 20200427
  21. RITUXIMAB [Suspect]
     Active Substance: RITUXIMAB
     Indication: Follicular lymphoma
     Dosage: 750 MG, EVERY 4 WEEKS
     Route: 042
     Dates: start: 20210308
  22. RITUXIMAB [Suspect]
     Active Substance: RITUXIMAB
     Dosage: 750 MG, EVERY 4 WEEKS
     Route: 042
     Dates: start: 20210705
  23. RITUXIMAB [Suspect]
     Active Substance: RITUXIMAB
     Dosage: 300 MG, ONCE IN A WEEK
     Route: 042
     Dates: start: 20210308
  24. RITUXIMAB [Suspect]
     Active Substance: RITUXIMAB
     Dosage: 300 MG, ONCE IN A WEEK
     Route: 042
     Dates: start: 20210705
  25. ACYCLOVIR [Concomitant]
     Active Substance: ACYCLOVIR
     Indication: Product used for unknown indication
     Dosage: UNK
     Route: 065
  26. ACYCLOVIR [Concomitant]
     Active Substance: ACYCLOVIR
     Dosage: (0.33/DAY), ONCE DAILY
     Route: 065
     Dates: start: 20200402, end: 20200404
  27. BUTYLSCOPOLAMINE BROMIDE [Concomitant]
     Active Substance: BUTYLSCOPOLAMINE BROMIDE
     Indication: Product used for unknown indication
     Route: 065
  28. CALCIUM [Concomitant]
     Active Substance: CALCIUM
     Indication: Product used for unknown indication
     Route: 065
     Dates: start: 20210504
  29. CEFUROXIME [Concomitant]
     Active Substance: CEFUROXIME
     Indication: Product used for unknown indication
     Dosage: UNK
     Route: 065
     Dates: start: 20210509
  30. CEFUROXIME [Concomitant]
     Active Substance: CEFUROXIME
     Dosage: UNK
     Route: 065
  31. CHLORHEXIDINE [Concomitant]
     Active Substance: CHLORHEXIDINE
     Indication: Hiatus hernia
     Route: 065
  32. CLEMASTINE FUMARATE [Concomitant]
     Active Substance: CLEMASTINE FUMARATE
     Indication: Product used for unknown indication
     Route: 065
     Dates: start: 20210509
  33. CHOLECALCIFEROL [Concomitant]
     Active Substance: CHOLECALCIFEROL
     Indication: Product used for unknown indication
     Route: 065
     Dates: start: 20210504
  34. DAPSONE [Concomitant]
     Active Substance: DAPSONE
     Indication: Headache
     Dosage: ONCE DAILY
     Route: 065
     Dates: start: 20200625
  35. DEXAMETHASONE [Concomitant]
     Active Substance: DEXAMETHASONE
     Indication: Headache
     Dosage: ONCE DAILY
     Route: 065
     Dates: start: 20200625
  36. FLUTICASONE FUROATE [Concomitant]
     Active Substance: FLUTICASONE FUROATE
     Indication: Product used for unknown indication
     Route: 065
     Dates: start: 20210708
  37. Gelclair [Concomitant]
     Indication: Product used for unknown indication
     Route: 065
     Dates: start: 20200407, end: 20200409
  38. HYDROCORTISONE [Concomitant]
     Active Substance: HYDROCORTISONE
     Indication: Product used for unknown indication
     Route: 065
     Dates: start: 20210715
  39. BUTYLSCOPOLAMINE BROMIDE [Concomitant]
     Active Substance: BUTYLSCOPOLAMINE BROMIDE
     Indication: Product used for unknown indication
     Route: 065
  40. LANSOPRAZOLE [Concomitant]
     Active Substance: LANSOPRAZOLE
     Indication: Product used for unknown indication
     Route: 065
  41. LOPERAMIDE [Concomitant]
     Active Substance: LOPERAMIDE
     Indication: Product used for unknown indication
     Route: 065
     Dates: start: 20210518
  42. METOCLOPRAMIDE [Concomitant]
     Active Substance: METOCLOPRAMIDE
     Indication: Pain
     Dosage: UNK
     Route: 065
     Dates: start: 20210509
  43. METOCLOPRAMIDE [Concomitant]
     Active Substance: METOCLOPRAMIDE
     Dosage: UNK
     Route: 065
     Dates: start: 20200214, end: 20200222
  44. METOCLOPRAMIDE [Concomitant]
     Active Substance: METOCLOPRAMIDE
     Dosage: 3 TIMES PER DAY
     Route: 065
     Dates: start: 20200214, end: 20200222
  45. MICONAZOLE NITRATE [Concomitant]
     Active Substance: MICONAZOLE NITRATE
     Indication: Product used for unknown indication
     Route: 065
     Dates: start: 20210715
  46. MORPHINE SULFATE [Concomitant]
     Active Substance: MORPHINE SULFATE
     Indication: Product used for unknown indication
     Route: 065
  47. NITROFURANTOIN [Concomitant]
     Active Substance: NITROFURANTOIN
     Indication: Hiatus hernia
     Dosage: ONCE DAILY
     Route: 065
     Dates: start: 20200204
  48. ONDANSETRON [Concomitant]
     Active Substance: ONDANSETRON
     Indication: Product used for unknown indication
     Dosage: 8 MG, (INITIATED-10-FEB-2022)
     Route: 065
     Dates: start: 20220210, end: 20220210
  49. ONDANSETRON [Concomitant]
     Active Substance: ONDANSETRON
     Dosage: UNK
     Route: 065
     Dates: start: 20210509
  50. MORPHINE SULFATE [Concomitant]
     Active Substance: MORPHINE SULFATE
     Indication: Product used for unknown indication
     Route: 065
  51. OXETACAINE [Concomitant]
     Active Substance: OXETHAZAINE
     Indication: Mucosal inflammation
     Route: 065
     Dates: start: 20200221
  52. ACETAMINOPHEN [Concomitant]
     Active Substance: ACETAMINOPHEN
     Indication: Pain
     Route: 065
     Dates: start: 20210308
  53. ACETAMINOPHEN [Concomitant]
     Active Substance: ACETAMINOPHEN
     Dosage: AS NECESSARY
     Route: 065
  54. AMDINOCILLIN PIVOXIL [Concomitant]
     Active Substance: AMDINOCILLIN PIVOXIL
     Indication: Product used for unknown indication
     Route: 065
  55. POTASSIUM CHLORIDE [Concomitant]
     Active Substance: POTASSIUM CHLORIDE
     Indication: Product used for unknown indication
     Route: 065
     Dates: start: 20210308
  56. PRAMIPEXOLE [Concomitant]
     Active Substance: PRAMIPEXOLE
     Indication: Pain
     Route: 065
     Dates: start: 20120823
  57. ALBUTEROL [Concomitant]
     Active Substance: ALBUTEROL
     Indication: Product used for unknown indication
     Route: 065
     Dates: start: 20210708
  58. VILANTEROL TRIFENATATE [Concomitant]
     Active Substance: VILANTEROL TRIFENATATE
     Indication: Product used for unknown indication
     Route: 065
     Dates: start: 20210708

REACTIONS (7)
  - Hydronephrosis [Unknown]
  - Off label use [Unknown]
  - Product use issue [Unknown]
  - Abdominal pain [Recovered/Resolved]
  - Sepsis [Unknown]
  - Blood creatinine increased [Unknown]
  - Constipation [Unknown]

NARRATIVE: CASE EVENT DATE: 20210308
